FAERS Safety Report 4395885-1 (Version None)
Quarter: 2004Q2

REPORT INFORMATION
  Report Type: 
  Country: None (occurrence: None)
  Receive Date: 20040621
  Receipt Date: 20030811
  Transmission Date: 20050107
  Serious: Yes (Other)
  Sender: FDA-Public Use
  Company Number: KII-2003-0008930

PATIENT
  Sex: Male

DRUGS (3)
  1. OXYCONTIN [Suspect]
     Dosage: 80 MG, TID
  2. LORCET-HD [Suspect]
     Dosage: 10 MG, QID
  3. VALIUM [Suspect]
     Dosage: 5 MG , DAILY

REACTIONS (1)
  - POLYSUBSTANCE ABUSE [None]
